FAERS Safety Report 4893479-2 (Version None)
Quarter: 2006Q1

REPORT INFORMATION
  Report Type: 
  Country: None (occurrence: None)
  Receive Date: 20060127
  Receipt Date: 20050701
  Transmission Date: 20060701
  Serious: No
  Sender: FDA-Public Use
  Company Number: US-BRISTOL-MYERS SQUIBB COMPANY-13022512

PATIENT

DRUGS (1)
  1. KENALOG-10 [Suspect]
     Indication: HYPERTROPHIC SCAR
     Dates: start: 20050630, end: 20050630

REACTIONS (1)
  - INJECTION SITE PAIN [None]
